FAERS Safety Report 13068162 (Version 1)
Quarter: 2016Q4

REPORT INFORMATION
  Report Type: Spontaneous
  Country: US (occurrence: US)
  Receive Date: 20161227
  Receipt Date: 20161227
  Transmission Date: 20170207
  Serious: No
  Sender: FDA-Public Use
  Company Number: None

PATIENT
  Age: 57 Year
  Sex: Female

DRUGS (2)
  1. DESMOPRESSIN [Suspect]
     Active Substance: DESMOPRESSIN
     Indication: DIABETES INSIPIDUS
  2. DESMOPRESSIN [Suspect]
     Active Substance: DESMOPRESSIN
     Indication: BIPOLAR DISORDER

REACTIONS (1)
  - Rash [None]

NARRATIVE: CASE EVENT DATE: 20161223
